FAERS Safety Report 7901890 (Version 4)
Quarter: 2013Q1

REPORT INFORMATION
  Report Type: Report from Study
  Country: US (occurrence: US)
  Receive Date: 20110418
  Receipt Date: 20130102
  Transmission Date: 20140127
  Serious: Yes (Other)
  Sender: FDA-Public Use
  Company Number: US-JNJFOC-20110406497

PATIENT
  Age: 44 Year
  Sex: Male
  Weight: 133.81 kg

DRUGS (6)
  1. STELARA [Suspect]
     Indication: PSORIASIS
     Dosage: PATIENT HAS HAD 4 DOSES, WITH LAST DOSE RECEIVED ON 22-DEC-2010.
     Route: 058
     Dates: start: 20101220
  2. STELARA [Suspect]
     Indication: PSORIASIS
     Route: 058
     Dates: start: 20100505
  3. STELARA [Suspect]
     Indication: PSORIASIS
     Route: 058
     Dates: start: 20100620
  4. STELARA [Suspect]
     Indication: PSORIASIS
     Dosage: PATIENT HAS HAD 4 DOSES, WITH LAST DOSE RECEIVED ON 22-DEC-2010.
     Route: 058
     Dates: start: 20110228
  5. TACLONEX [Concomitant]
  6. CORTICOSTEROIDS [Concomitant]

REACTIONS (1)
  - Disturbance in attention [Recovered/Resolved]
